FAERS Safety Report 6132499-7 (Version None)
Quarter: 2009Q1

REPORT INFORMATION
  Report Type: 
  Country: None (occurrence: None)
  Receive Date: 20090324
  Receipt Date: 20090312
  Transmission Date: 20090719
  Serious: Yes (Life-Threatening, Hospitalization)
  Sender: FDA-Public Use
  Company Number: 2009AP001038

PATIENT
  Age: 81 Year
  Sex: Female

DRUGS (4)
  1. RISPERIDONE [Suspect]
     Dosage: 1 MG; QD; PO
     Route: 048
     Dates: start: 20090209, end: 20090216
  2. FOLIC ACID [Concomitant]
  3. LEVOTHYROXINE SODIUM [Concomitant]
  4. SIMVASTATIN [Concomitant]

REACTIONS (1)
  - HAEMORRHAGIC STROKE [None]
